FAERS Safety Report 7039036 (Version 29)
Quarter: 2014Q2

REPORT INFORMATION
  Report Type: Report from Study
  Country: CA (occurrence: CA)
  Receive Date: 20090701
  Receipt Date: 20140411
  Transmission Date: 20141212
  Serious: Yes (Death, Other)
  Sender: FDA-Public Use
  Company Number: PHHY2008CA01221

PATIENT
  Sex: Male

DRUGS (4)
  1. SANDOSTATIN LAR [Suspect]
     Indication: CARCINOID TUMOUR
     Dosage: 20 MG EVERY 4 WEEKS
     Route: 030
     Dates: start: 20041101, end: 20050330
  2. SANDOSTATIN LAR [Suspect]
     Dosage: 20 MG, UKN
     Route: 030
     Dates: end: 20100410
  3. SANDOSTATIN LAR [Suspect]
     Dosage: 20 MG EVERY 4 WEEKS
     Route: 030
  4. SANDOSTATIN LAR [Suspect]
     Dosage: 30 MG, EVERY 4 WEEKS
     Route: 030
     Dates: end: 20140311

REACTIONS (29)
  - Death [Fatal]
  - Ankle fracture [Recovering/Resolving]
  - Arthralgia [Unknown]
  - Joint injury [Recovering/Resolving]
  - Influenza [Unknown]
  - Nasopharyngitis [Recovered/Resolved]
  - Productive cough [Unknown]
  - Productive cough [Unknown]
  - Chills [Unknown]
  - Body temperature increased [Unknown]
  - Fall [Unknown]
  - Vitreous floaters [Unknown]
  - Visual acuity reduced [Unknown]
  - Eye disorder [Unknown]
  - Lacrimation increased [Unknown]
  - Eye discharge [Unknown]
  - Vision blurred [Not Recovered/Not Resolved]
  - Limb injury [Unknown]
  - Nephrolithiasis [Unknown]
  - Blood pressure increased [Unknown]
  - Malignant neoplasm progression [Unknown]
  - Blood pressure systolic increased [Unknown]
  - Disturbance in social behaviour [Unknown]
  - Emotional distress [Not Recovered/Not Resolved]
  - Depression [Unknown]
  - Diarrhoea [Unknown]
  - Abdominal discomfort [Unknown]
  - Heart rate increased [Recovering/Resolving]
  - Vomiting [Unknown]
